FAERS Safety Report 6093209-5 (Version None)
Quarter: 2009Q1

REPORT INFORMATION
  Report Type: 
  Country: None (occurrence: None)
  Receive Date: 20090226
  Receipt Date: 20090223
  Transmission Date: 20090719
  Serious: Yes (Hospitalization)
  Sender: FDA-Public Use
  Company Number: FR-BRISTOL-MYERS SQUIBB COMPANY-14517783

PATIENT
  Age: 58 Year
  Sex: Male

DRUGS (6)
  1. CISPLATIN [Suspect]
     Indication: GASTRIC CANCER
  2. XELODA [Suspect]
     Indication: GASTRIC CANCER
  3. IRINOTECAN HCL [Suspect]
     Indication: GASTRIC CANCER
     Dosage: CONCENTRATE FOR SOLUTION FOR INFUSION
  4. EPIRUBICIN HCL [Suspect]
     Indication: GASTRIC CANCER
  5. FOLINIC ACID [Suspect]
     Indication: GASTRIC CANCER
  6. FLUOROURACIL [Suspect]
     Indication: GASTRIC CANCER

REACTIONS (1)
  - DYSPEPSIA [None]
